FAERS Safety Report 5643318-7 (Version None)
Quarter: 2008Q1

REPORT INFORMATION
  Report Type: 
  Country: None (occurrence: None)
  Receive Date: 20080228
  Receipt Date: 20080222
  Transmission Date: 20080703
  Serious: Yes (Other)
  Sender: FDA-Public Use
  Company Number: PHNU2006DE03735

PATIENT
  Sex: Male

DRUGS (8)
  1. MYFORTIC [Suspect]
     Indication: NEURODERMATITIS
     Dosage: 180 MG, BID
     Route: 048
  2. MYFORTIC [Suspect]
     Dosage: 360 MG, BID
     Route: 048
     Dates: start: 20060810
  3. URBASON [Concomitant]
  4. TELFAST [Concomitant]
     Dosage: 180 MG, QD
  5. STILNOX [Concomitant]
     Dosage: 10MG/DAY
  6. PANTOZOL [Concomitant]
     Dosage: 40MG/DAY
  7. CIPRALEX [Concomitant]
     Dosage: 10MG/DAY
  8. REMERGIL [Concomitant]
     Dosage: 15,MG/DAY

REACTIONS (11)
  - CATARACT [None]
  - CONJUNCTIVITIS [None]
  - DRY MOUTH [None]
  - ERECTILE DYSFUNCTION [None]
  - LIPIDS INCREASED [None]
  - OSTEOARTHRITIS [None]
  - PERIODONTITIS [None]
  - THERAPEUTIC RESPONSE UNEXPECTED [None]
  - TREMOR [None]
  - VISUAL DISTURBANCE [None]
  - WHITE BLOOD CELL COUNT DECREASED [None]
